FAERS Safety Report 6604736-3 (Version None)
Quarter: 2010Q1

REPORT INFORMATION
  Report Type: 
  Country: None (occurrence: None)
  Receive Date: 20100226
  Receipt Date: 20091118
  Transmission Date: 20100710
  Serious: No
  Sender: FDA-Public Use
  Company Number: US-BRISTOL-MYERS SQUIBB COMPANY-14863260

PATIENT
  Sex: Female

DRUGS (1)
  1. ONGLYZA [Suspect]
     Dosage: 4 DF=4 PILLS

REACTIONS (2)
  - LETHARGY [None]
  - OVERDOSE [None]
